FAERS Safety Report 19604021 (Version 8)
Quarter: 2021Q4

REPORT INFORMATION
  Report Type: Report from Study
  Country: CO (occurrence: CO)
  Receive Date: 20210724
  Receipt Date: 20211014
  Transmission Date: 20220303
  Serious: Yes (Death, Hospitalization, Disabling, Other)
  Sender: FDA-Public Use
  Company Number: CO-AUROBINDO-AUR-APL-2021-006310

PATIENT
  Age: 73 Year
  Sex: Female

DRUGS (3)
  1. FOLOTYN [Suspect]
     Active Substance: PRALATREXATE
     Indication: Peripheral T-cell lymphoma unspecified
     Dosage: 45 MILLIGRAM, DAILY
     Route: 042
     Dates: start: 20191208, end: 20210119
  2. FOLOTYN [Suspect]
     Active Substance: PRALATREXATE
     Dosage: 50 MILLIGRAM, DAILY
     Route: 042
     Dates: start: 20200506
  3. FOLOTYN [Suspect]
     Active Substance: PRALATREXATE
     Dosage: 46 MILLIGRAM, EVERY WEEK
     Route: 042
     Dates: start: 20201210, end: 20210819

REACTIONS (10)
  - Disease complication [Fatal]
  - Pneumonia [Unknown]
  - Mass [Unknown]
  - COVID-19 [Recovered/Resolved]
  - Malaise [Recovered/Resolved]
  - Decreased appetite [Recovered/Resolved]
  - Weight decreased [Recovered/Resolved]
  - Pain [Recovered/Resolved]
  - Oral hyperaesthesia [Unknown]
  - Dry mouth [Unknown]

NARRATIVE: CASE EVENT DATE: 20210118
